FAERS Safety Report 8724244 (Version 2)
Quarter: 2012Q4

REPORT INFORMATION
  Report Type: 
  Country: US (occurrence: US)
  Receive Date: 20120815
  Receipt Date: 20120914
  Transmission Date: 20130627
  Serious: No
  Sender: FDA-Public Use
  Company Number: US-BAYER-2012-080703

PATIENT
  Age: 41 Year
  Sex: Female
  Weight: 65.76 kg

DRUGS (2)
  1. MIRENA [Suspect]
     Indication: MENORRHAGIA
     Dosage: 20 mcg/24hr, CONT
     Route: 015
     Dates: start: 20110822
  2. MIRENA [Suspect]
     Indication: CONTRACEPTION

REACTIONS (4)
  - Menorrhagia [None]
  - Weight increased [None]
  - Disturbance in attention [None]
  - Device expulsion [None]
